FAERS Safety Report 22967433 (Version 2)
Quarter: 2024Q4

REPORT INFORMATION
  Report Type: Spontaneous
  Country: US (occurrence: US)
  Receive Date: 20230921
  Receipt Date: 20241030
  Transmission Date: 20250115
  Serious: Yes (Hospitalization)
  Sender: PFIZER
  Company Number: US-PFIZER INC-202300305862

PATIENT
  Age: 87 Year
  Sex: Female

DRUGS (10)
  1. IBRANCE [Suspect]
     Active Substance: PALBOCICLIB
     Indication: Breast cancer metastatic
     Dosage: 75 MG, CYCLIC, DAILY 3 WEEKS ON, 1 WEEK OFF
     Route: 048
     Dates: start: 20230726
  2. IBRANCE [Suspect]
     Active Substance: PALBOCICLIB
     Dosage: TAKE 1 CAPSULE DAILY FOR 7 DAYS FOLLOWED BY 7 DAYS OFF
  3. TRAMADOL [Concomitant]
     Active Substance: TRAMADOL
  4. ELIQUIS [Concomitant]
     Active Substance: APIXABAN
  5. AMLODIPINE [Concomitant]
     Active Substance: AMLODIPINE BESYLATE
  6. ANASTROZOLE [Concomitant]
     Active Substance: ANASTROZOLE
  7. FAMOTIDINE [Concomitant]
     Active Substance: FAMOTIDINE
  8. IRBESARTAN [Concomitant]
     Active Substance: IRBESARTAN
  9. PRAVASTATIN [Concomitant]
     Active Substance: PRAVASTATIN
  10. LEVOTHYROXINE [Concomitant]
     Active Substance: LEVOTHYROXINE

REACTIONS (5)
  - Atrial fibrillation [Recovering/Resolving]
  - Off label use [Unknown]
  - Dysgeusia [Recovering/Resolving]
  - Eating disorder [Recovering/Resolving]
  - Abdominal discomfort [Recovering/Resolving]
